FAERS Safety Report 12091127 (Version 1)
Quarter: 2016Q1

REPORT INFORMATION
  Report Type: Spontaneous
  Country: TR (occurrence: TR)
  Receive Date: 20160218
  Receipt Date: 20160218
  Transmission Date: 20160526
  Serious: Yes (Hospitalization, Other)
  Sender: FDA-Public Use
  Company Number: TR-GLAXOSMITHKLINE-TR2016GSK023605

PATIENT
  Age: 75 Year
  Sex: Male

DRUGS (4)
  1. CARVEDILOL. [Suspect]
     Active Substance: CARVEDILOL
     Dosage: 6.25 MG, UNK
  2. ACETYLSALICYLIC ACID [Concomitant]
     Active Substance: ASPIRIN
     Dosage: 100 MG, UNK
  3. DIGOXIN. [Concomitant]
     Active Substance: DIGOXIN
     Indication: CARDIAC FAILURE
  4. DIGOXIN. [Concomitant]
     Active Substance: DIGOXIN
     Indication: CORONARY ARTERY DISEASE

REACTIONS (4)
  - Bradycardia [Unknown]
  - Dizziness [Unknown]
  - Mitral valve incompetence [Unknown]
  - Atrial fibrillation [Unknown]
